FAERS Safety Report 9207092 (Version 2)
Quarter: 2013Q4

REPORT INFORMATION
  Report Type: Spontaneous
  Country: US (occurrence: US)
  Receive Date: 20130403
  Receipt Date: 20131120
  Transmission Date: 20140711
  Serious: Yes (Other)
  Sender: FDA-Public Use
  Company Number: US-BAYER-2013-040729

PATIENT
  Age: 31 Year
  Sex: Female

DRUGS (5)
  1. YAZ [Suspect]
     Dosage: UNK
     Dates: start: 2003, end: 2004
  2. YASMIN [Suspect]
     Dosage: UNK
     Dates: start: 2003, end: 2004
  3. OCELLA [Suspect]
     Dosage: UNK
     Dates: start: 2003, end: 2004
  4. NEXIUM [Concomitant]
     Dosage: 40 MG, BID
     Route: 048
  5. PROZAC [Concomitant]
     Dosage: DAILY DOSE 20 MG
     Route: 048

REACTIONS (11)
  - Cholecystitis chronic [None]
  - Cholelithiasis [None]
  - Abdominal pain [None]
  - Injury [None]
  - Pain [None]
  - General physical health deterioration [None]
  - Anxiety [None]
  - Emotional distress [None]
  - Pain [None]
  - Anhedonia [None]
  - Fear [None]
